FAERS Safety Report 7956647-9 (Version None)
Quarter: 2011Q4

REPORT INFORMATION
  Report Type: 
  Country: None (occurrence: None)
  Receive Date: 20111130
  Receipt Date: 20111116
  Transmission Date: 20120403
  Serious: Yes (Hospitalization)
  Sender: FDA-Public Use
  Company Number: LTI2011A00291

PATIENT
  Age: 68 Year
  Sex: Female

DRUGS (8)
  1. CALTRATE VITAMINE D3 (COLECALCIFEROL, CALCIUM CARBONATE) [Suspect]
     Dosage: (1 IN 1 D)
     Route: 048
  2. LEDERFOLINE (CALCIUM FOLINATE) [Suspect]
     Dosage: 20 MG/WEEK (5 MG, 1 IN 1 WK)
     Route: 048
  3. ACTONEL [Suspect]
     Dosage: (75 MG, 2 IN 1 M)
     Route: 048
  4. ENBREL [Suspect]
     Indication: RHEUMATOID ARTHRITIS
     Dosage: 50 MG/WEEK (1 IN 1 WK)
     Route: 048
     Dates: start: 20101101
  5. PREDNISONE [Concomitant]
  6. METHOTREXATE [Suspect]
     Dosage: 20 MG/WEEK (10 MG/ML, 1 IN 1 WK)
     Dates: start: 19920101
  7. CELEBREX [Suspect]
     Dosage: 200 MG (200 MG, 1 IN 1 D)
     Route: 048
  8. LANSOPRAZOLE [Suspect]
     Dosage: (15 MG, AS REQUIRED)
     Route: 048

REACTIONS (3)
  - PERSECUTORY DELUSION [None]
  - WEIGHT DECREASED [None]
  - HALLUCINATION, AUDITORY [None]
